FAERS Safety Report 10911798 (Version 2)
Quarter: 2015Q4

REPORT INFORMATION
  Report Type: Spontaneous
  Country: None (occurrence: None)
  Receive Date: 20150309
  Receipt Date: 20151110
  Transmission Date: 20160304
  Serious: Yes (Other)
  Sender: FDA-Public Use
  Company Number: ADR-2015-00223

PATIENT
  Age: 38 Year
  Sex: Female

DRUGS (2)
  1. ANESTHESIA - DRUG(S) NOT SPECIFIED [Suspect]
     Active Substance: UNSPECIFIED INGREDIENT
  2. LIORESAL [Suspect]
     Active Substance: BACLOFEN
     Indication: MUSCLE SPASTICITY
     Dosage: 116 MCG/DAY

REACTIONS (6)
  - Pseudomeningocele [None]
  - Delayed recovery from anaesthesia [None]
  - Cerebrospinal fluid leakage [None]
  - Therapeutic response unexpected [None]
  - Sedation [None]
  - Drug ineffective [None]
